FAERS Safety Report 10464179 (Version 1)
Quarter: 2014Q3

REPORT INFORMATION
  Report Type: Spontaneous
  Country: DE (occurrence: DE)
  Receive Date: 20140919
  Receipt Date: 20140919
  Transmission Date: 20150326
  Serious: Yes (Disabling)
  Sender: FDA-Public Use
  Company Number: DE-SA-2014SA127182

PATIENT
  Age: 42 Year
  Sex: Female

DRUGS (4)
  1. PREDNISOLON [Concomitant]
     Active Substance: PREDNISOLONE
  2. ARAVA [Suspect]
     Active Substance: LEFLUNOMIDE
     Route: 065
  3. MTX [Concomitant]
     Active Substance: METHOTREXATE SODIUM
  4. TILIDINE [Interacting]
     Active Substance: TILIDINE
     Indication: PAIN
     Dosage: FORM : DROPS
     Route: 065

REACTIONS (6)
  - Dizziness [Recovered/Resolved]
  - Hypoaesthesia [Recovered/Resolved]
  - Nausea [Recovered/Resolved]
  - Drug interaction [Unknown]
  - Dysstasia [None]
  - Chills [Recovered/Resolved]

NARRATIVE: CASE EVENT DATE: 201406
